FAERS Safety Report 16283027 (Version 1)
Quarter: 2019Q2

REPORT INFORMATION
  Report Type: Spontaneous
  Country: US (occurrence: US)
  Receive Date: 20190507
  Receipt Date: 20190507
  Transmission Date: 20190711
  Serious: Yes (Life-Threatening, Hospitalization)
  Sender: FDA-Public Use
  Company Number: US-ASTRAZENECA-2019SE68907

PATIENT
  Sex: Female

DRUGS (2)
  1. SEROQUEL [Suspect]
     Active Substance: QUETIAPINE FUMARATE
     Indication: INSOMNIA
     Route: 048
     Dates: start: 201809
  2. ABILIFY [Concomitant]
     Active Substance: ARIPIPRAZOLE
     Dosage: 2.0MG UNKNOWN
     Route: 065

REACTIONS (10)
  - Respiratory arrest [Unknown]
  - Overdose [Unknown]
  - Malaise [Unknown]
  - Insomnia [Unknown]
  - Suicidal behaviour [Unknown]
  - Off label use [Recovered/Resolved]
  - Expired product administered [Unknown]
  - Drug ineffective [Unknown]
  - Product use in unapproved indication [Unknown]
  - Depression [Unknown]
